FAERS Safety Report 7978136-8 (Version None)
Quarter: 2011Q4

REPORT INFORMATION
  Report Type: 
  Country: None (occurrence: None)
  Receive Date: 20111214
  Receipt Date: 20111205
  Transmission Date: 20120403
  Serious: Yes (Other)
  Sender: FDA-Public Use
  Company Number: US-CELGENEUS-163-21880-11120733

PATIENT
  Sex: Female
  Weight: 56.296 kg

DRUGS (12)
  1. DILANTIN [Concomitant]
     Route: 065
  2. LANTUS [Concomitant]
     Route: 065
  3. METFORMIN HCL [Concomitant]
     Route: 065
  4. MULTIVITAMIN [Concomitant]
     Route: 065
  5. NOVOLIN 70/30 [Concomitant]
     Route: 065
  6. KEPPRA [Concomitant]
     Route: 065
  7. LOSARTAN POTASSIUM [Concomitant]
     Route: 065
  8. JANUVIA [Concomitant]
     Route: 065
  9. CALCIUM [Concomitant]
     Route: 065
  10. ASPIRIN [Concomitant]
     Route: 065
  11. IRON [Concomitant]
     Route: 065
  12. REVLIMID [Suspect]
     Indication: MULTIPLE MYELOMA
     Dosage: 15 MILLIGRAM
     Route: 048
     Dates: start: 20111101

REACTIONS (2)
  - OEDEMA PERIPHERAL [None]
  - BLOOD GLUCOSE INCREASED [None]
